FAERS Safety Report 5026957-6 (Version None)
Quarter: 2006Q2

REPORT INFORMATION
  Report Type: 
  Country: None (occurrence: None)
  Receive Date: 20060615
  Receipt Date: 20060221
  Transmission Date: 20061013
  Serious: Yes (Hospitalization, Other)
  Sender: FDA-Public Use
  Company Number: US-AVENTIS-200611860US

PATIENT
  Age: 82 Year
  Sex: Female

DRUGS (21)
  1. LANTUS [Suspect]
     Indication: DIABETES MELLITUS NON-INSULIN-DEPENDENT
     Dosage: DOSE UNIT: UNITS
     Dates: start: 20060201
  2. LANTUS [Suspect]
     Dosage: DOSE UNIT: UNITS
     Dates: start: 20060201
  3. LANTUS [Suspect]
     Dosage: DOSE UNIT: UNITS
     Route: 051
     Dates: start: 20060207, end: 20060224
  4. LANTUS [Suspect]
     Dosage: DOSE UNIT: UNITS
     Route: 051
     Dates: start: 20060224
  5. LANTUS [Suspect]
     Dosage: DOSE UNIT: UNITS
     Dates: start: 20060101
  6. OPTICLIK (INSULIN INJECTION PEN) [Suspect]
     Dosage: DOSE: UNKNOWN
  7. FLUCONAZOLE [Concomitant]
     Dosage: DOSE: UNKNOWN
  8. CENTRUM SILVER [Concomitant]
  9. ASPIRIN [Concomitant]
  10. CELEXA [Concomitant]
  11. FERROUS SULFATE TAB [Concomitant]
  12. LASIX [Concomitant]
  13. METOPROLOL TARTRATE [Concomitant]
  14. FOLIC ACID [Concomitant]
  15. INNOLET [Concomitant]
     Dosage: DOSE: UNKNOWN
     Dates: start: 20060214, end: 20060224
  16. NOVOLIN N [Concomitant]
     Dosage: DOSE UNIT: UNITS
     Dates: start: 20060214, end: 20060224
  17. NOVOLIN N [Concomitant]
     Dosage: DOSE UNIT: UNITS
     Dates: start: 20060201
  18. NOVOLIN N [Concomitant]
     Dosage: DOSE UNIT: UNITS
  19. HYDRALAZINE HCL [Concomitant]
  20. GLYBURIDE [Concomitant]
     Dates: end: 20060101
  21. ANTIBIOTICS [Concomitant]
     Indication: URINARY TRACT INFECTION

REACTIONS (34)
  - ALANINE AMINOTRANSFERASE INCREASED [None]
  - ASPARTATE AMINOTRANSFERASE INCREASED [None]
  - BLOOD ALKALINE PHOSPHATASE INCREASED [None]
  - BLOOD CREATININE INCREASED [None]
  - BLOOD GLUCOSE DECREASED [None]
  - BLOOD GLUCOSE INCREASED [None]
  - BLOOD PRESSURE INCREASED [None]
  - BLOOD UREA INCREASED [None]
  - CONFUSIONAL STATE [None]
  - DEAFNESS [None]
  - DEPRESSED LEVEL OF CONSCIOUSNESS [None]
  - DYSPHONIA [None]
  - ERYTHEMA [None]
  - FATIGUE [None]
  - GRANULOCYTOSIS [None]
  - HAEMATOCRIT DECREASED [None]
  - HAEMATURIA [None]
  - HAEMOGLOBIN DECREASED [None]
  - HYPOGLYCAEMIA [None]
  - HYPOGLYCAEMIC COMA [None]
  - LEUKOCYTOSIS [None]
  - LIVER FUNCTION TEST ABNORMAL [None]
  - LYMPHOPENIA [None]
  - OEDEMA [None]
  - ONYCHOMYCOSIS [None]
  - ORTHOPNOEA [None]
  - PALPITATIONS [None]
  - PROTEIN URINE PRESENT [None]
  - RENAL FAILURE CHRONIC [None]
  - THIRST [None]
  - TINEA PEDIS [None]
  - URINARY CASTS [None]
  - URINARY TRACT INFECTION FUNGAL [None]
  - VENOUS STASIS [None]
